FAERS Safety Report 8933748 (Version 1)
Quarter: 2012Q4

REPORT INFORMATION
  Report Type: 
  Country: CA (occurrence: CA)
  Receive Date: 20121129
  Receipt Date: 20121129
  Transmission Date: 20130627
  Serious: Yes (Hospitalization)
  Sender: FDA-Public Use
  Company Number: CA-ASTRAZENECA-2012SE88065

PATIENT
  Age: 46 Year
  Sex: Male

DRUGS (4)
  1. CRESTOR [Suspect]
     Route: 048
  2. ASPIRIN COATED [Concomitant]
     Route: 048
  3. PLAVIX [Concomitant]
     Route: 048
  4. VIAGRA [Concomitant]
     Route: 065

REACTIONS (1)
  - Chest pain [Recovered/Resolved]
